FAERS Safety Report 16021106 (Version 1)
Quarter: 2019Q2

REPORT INFORMATION
  Report Type: Spontaneous
  Country: US (occurrence: US)
  Receive Date: 20190228
  Receipt Date: 20190228
  Transmission Date: 20190711
  Serious: No
  Sender: FDA-Public Use
  Company Number: None

PATIENT
  Age: 36 Year
  Sex: Female
  Weight: 81 kg

DRUGS (3)
  1. MULTIVITAMINS [Concomitant]
     Active Substance: VITAMINS
  2. TIZANADINE [Concomitant]
     Active Substance: TIZANIDINE
  3. XIIDRA [Suspect]
     Active Substance: LIFITEGRAST
     Indication: DRY EYE
     Dates: start: 20190108, end: 20190222

REACTIONS (8)
  - Lacrimation increased [None]
  - Sinus pain [None]
  - Urticaria [None]
  - Throat irritation [None]
  - Dyspepsia [None]
  - Eye pain [None]
  - Blindness [None]
  - Instillation site pain [None]

NARRATIVE: CASE EVENT DATE: 20190122
